FAERS Safety Report 13743414 (Version 1)
Quarter: 2017Q3

REPORT INFORMATION
  Report Type: Spontaneous
  Country: US (occurrence: US)
  Receive Date: 20170711
  Receipt Date: 20170711
  Transmission Date: 20171127
  Serious: Yes (Other)
  Sender: FDA-Public Use
  Company Number: US-BAYER-2017-127851

PATIENT
  Age: 88 Year
  Sex: Male

DRUGS (1)
  1. MIRALAX [Suspect]
     Active Substance: POLYETHYLENE GLYCOL 3350
     Indication: CONSTIPATION
     Dosage: 12 PACKETS IN 12 HOURS
     Route: 048
     Dates: start: 20170701

REACTIONS (5)
  - Gastrointestinal pain [Recovering/Resolving]
  - Flatulence [Recovering/Resolving]
  - Hypertension [Recovering/Resolving]
  - Gastrointestinal motility disorder [Recovering/Resolving]
  - Incorrect dosage administered [Unknown]

NARRATIVE: CASE EVENT DATE: 20170701
